FAERS Safety Report 9941735 (Version 2)
Quarter: 2014Q1

REPORT INFORMATION
  Report Type: Report from Study
  Country: US (occurrence: US)
  Receive Date: 20140303
  Receipt Date: 20140303
  Transmission Date: 20141002
  Serious: No
  Sender: FDA-Public Use
  Company Number: US-ABBVIE-12P-163-0998592-00

PATIENT
  Age: 37 Year
  Sex: Female

DRUGS (18)
  1. PROAIR [Concomitant]
     Indication: ASTHMA
     Dosage: 2 PUFFS AS NEEDED
     Route: 055
  2. SYMBICORT [Concomitant]
     Dosage: 2 PUFFS ONCE DAILY AS NEEDED
     Route: 055
  3. IMITREX [Concomitant]
     Indication: MIGRAINE
     Dosage: AS NEEDED
     Route: 048
  4. VITAMIN B12 [Concomitant]
     Indication: VITAMIN B12 DECREASED
     Dosage: MONTHLY
  5. VITAMIN D [Concomitant]
     Indication: VITAMIN D DECREASED
     Route: 048
  6. VITAMIN D [Concomitant]
     Route: 048
  7. FLINTSTONE OTC VITAMIN [Concomitant]
     Indication: VITAMIN SUPPLEMENTATION
     Dosage: 1 PILL DAILY
  8. MICARDIS HCT [Concomitant]
     Indication: BLOOD PRESSURE
     Dosage: 40/12.5MG DAILY
  9. LAMOTRIGINE [Concomitant]
     Indication: DEPRESSION
  10. SPIRIVA [Concomitant]
     Indication: ASTHMA
     Dates: start: 201212
  11. PHENTERMINE [Concomitant]
     Indication: WEIGHT DECREASED
  12. PREMARIN [Concomitant]
     Indication: HOT FLUSH
     Dates: start: 201301
  13. HUMIRA [Suspect]
     Indication: CROHN^S DISEASE
     Dosage: LOADING DOSE
     Route: 058
     Dates: start: 20121002, end: 20121002
  14. HUMIRA [Suspect]
     Route: 058
     Dates: start: 20121016
  15. SINGULAIR [Concomitant]
     Indication: ASTHMA
     Dosage: 10MG DAILY
     Route: 048
  16. ZYRTEC [Concomitant]
     Indication: HYPERSENSITIVITY
     Dosage: 20MG DAILY
     Route: 048
  17. HCTZ [Concomitant]
     Indication: BLOOD PRESSURE
     Dosage: 10MG DAILY
     Route: 048
     Dates: end: 201211
  18. LISINOPRIL [Concomitant]
     Indication: BLOOD PRESSURE
     Dosage: 40MG DAILY
     Route: 048

REACTIONS (6)
  - Blood pressure increased [Unknown]
  - Injection site pain [Recovered/Resolved]
  - Heart rate increased [Unknown]
  - Blood cholesterol increased [Unknown]
  - Sleep apnoea syndrome [Unknown]
  - Oropharyngeal pain [Recovered/Resolved]
